FAERS Safety Report 25705407 (Version 1)
Quarter: 2025Q3

REPORT INFORMATION
  Report Type: Spontaneous
  Country: US (occurrence: None)
  Receive Date: 20250819
  Receipt Date: 20250819
  Transmission Date: 20251020
  Serious: No
  Sender: FDA-CTU
  Company Number: None

PATIENT
  Age: 78 Year
  Sex: Female
  Weight: 52.65 kg

DRUGS (6)
  1. EVENITY [Suspect]
     Active Substance: ROMOSOZUMAB-AQQG
     Indication: Osteoporosis
     Route: 058
     Dates: start: 20250528, end: 20250723
  2. LISINOPRIL [Concomitant]
     Active Substance: LISINOPRIL
  3. Calcium with Vit D [Concomitant]
  4. FLAXSEED [Concomitant]
     Active Substance: FLAX SEED
  5. B12 [Concomitant]
  6. Xyrtec [Concomitant]

REACTIONS (1)
  - Insomnia [None]
